FAERS Safety Report 8965537 (Version 1)
Quarter: 2012Q4

REPORT INFORMATION
  Report Type: Spontaneous
  Country: US (occurrence: None)
  Receive Date: 20121212
  Receipt Date: 20121212
  Transmission Date: 20130627
  Serious: Yes (Other)
  Sender: FDA-Public Use
  Company Number: None

PATIENT
  Age: 33 Year
  Sex: Male
  Weight: 72.58 kg

DRUGS (1)
  1. ZYPREXA [Suspect]
     Indication: BIPOLAR I DISORDER
     Route: 048
     Dates: start: 201207, end: 201208

REACTIONS (7)
  - Insomnia [None]
  - Psychotic disorder [None]
  - Hallucination, auditory [None]
  - Product substitution issue [None]
  - Drug abuse [None]
  - Alcohol use [None]
  - Thinking abnormal [None]
